FAERS Safety Report 9484377 (Version 1)
Quarter: 2013Q3

REPORT INFORMATION
  Report Type: Spontaneous
  Country: US (occurrence: US)
  Receive Date: 20130828
  Receipt Date: 20130828
  Transmission Date: 20140515
  Serious: No
  Sender: FDA-Public Use
  Company Number: US-BAYER-2013-103104

PATIENT
  Sex: Female
  Weight: 53.06 kg

DRUGS (1)
  1. ALEVE GELCAPS [Suspect]
     Indication: ARTHRITIS
     Dosage: 2 DF, ONCE
     Route: 048

REACTIONS (2)
  - Arthritis [None]
  - Drug ineffective [None]
